FAERS Safety Report 8180177-5 (Version None)
Quarter: 2012Q1

REPORT INFORMATION
  Report Type: 
  Country: None (occurrence: None)
  Receive Date: 20120302
  Receipt Date: 20120227
  Transmission Date: 20120608
  Serious: Yes (Other)
  Sender: FDA-Public Use
  Company Number: US-PFIZER INC-2012051786

PATIENT
  Sex: Male

DRUGS (2)
  1. ZYVOX [Suspect]
     Dosage: UNK
     Route: 030
  2. ZYVOX [Suspect]
     Dosage: UNK
     Route: 048

REACTIONS (1)
  - HYPERSENSITIVITY [None]
